FAERS Safety Report 21836718 (Version 2)
Quarter: 2023Q2

REPORT INFORMATION
  Report Type: Spontaneous
  Country: US (occurrence: US)
  Receive Date: 20230109
  Receipt Date: 20230407
  Transmission Date: 20230721
  Serious: Yes (Other)
  Sender: FDA-Public Use
  Company Number: US-Melinta Therapeutics, LLC-US-MLNT-22-00299

PATIENT
  Age: 41 Year
  Sex: Male

DRUGS (3)
  1. KIMYRSA [Suspect]
     Active Substance: ORITAVANCIN DIPHOSPHATE
     Indication: Product used for unknown indication
     Route: 041
     Dates: start: 20221121, end: 20221121
  2. KIMYRSA [Suspect]
     Active Substance: ORITAVANCIN DIPHOSPHATE
     Dosage: NOT PROVIDED.
     Route: 041
     Dates: start: 20221206, end: 20221206
  3. KIMYRSA [Suspect]
     Active Substance: ORITAVANCIN DIPHOSPHATE
     Route: 041
     Dates: start: 20221220, end: 20221220

REACTIONS (6)
  - Vancomycin infusion reaction [Unknown]
  - Chills [Recovered/Resolved]
  - Back pain [Unknown]
  - Flushing [Unknown]
  - Nausea [Unknown]
  - Multiple use of single-use product [Unknown]

NARRATIVE: CASE EVENT DATE: 20221206
